FAERS Safety Report 6318887 (Version 4)
Quarter: 2025Q3

REPORT INFORMATION
  Report Type: Spontaneous
  Country: EU (occurrence: EU)
  Receive Date: 20070523
  Receipt Date: 20250813
  Transmission Date: 20251021
  Serious: Yes (Death, Life-Threatening, Other)
  Sender: MERCK SHARP & DOHME LLC
  Company Number: EU-MERCK-0705ITA00017

PATIENT
  Age: 7 Year
  Sex: Female

DRUGS (18)
  1. CASPOFUNGIN [Suspect]
     Active Substance: CASPOFUNGIN
     Indication: Bronchopulmonary aspergillosis
     Route: 041
  2. CASPOFUNGIN [Suspect]
     Active Substance: CASPOFUNGIN
     Indication: Bronchopulmonary aspergillosis
     Route: 041
  3. CASPOFUNGIN [Suspect]
     Active Substance: CASPOFUNGIN
     Indication: Bronchopulmonary aspergillosis
     Route: 041
  4. CASPOFUNGIN [Suspect]
     Active Substance: CASPOFUNGIN
     Indication: Bronchopulmonary aspergillosis
     Route: 041
  5. CASPOFUNGIN [Suspect]
     Active Substance: CASPOFUNGIN
     Indication: Bronchopulmonary aspergillosis
     Route: 041
  6. CASPOFUNGIN [Suspect]
     Active Substance: CASPOFUNGIN
     Indication: Bronchopulmonary aspergillosis
     Route: 041
  7. CASPOFUNGIN [Suspect]
     Active Substance: CASPOFUNGIN
     Indication: Bronchopulmonary aspergillosis
     Route: 041
  8. CASPOFUNGIN [Suspect]
     Active Substance: CASPOFUNGIN
     Indication: Bronchopulmonary aspergillosis
     Route: 041
  9. AMPHOTERICIN B [Suspect]
     Active Substance: AMPHOTERICIN B
  10. FLUDARABINE PHOSPHATE [Concomitant]
     Active Substance: FLUDARABINE PHOSPHATE
  11. ETOPOSIDE [Concomitant]
     Active Substance: ETOPOSIDE
  12. MELPHALAN [Concomitant]
     Active Substance: MELPHALAN
  13. THYMOCYTE IMMUNE GLOBULIN NOS [Suspect]
     Active Substance: THYMOCYTE IMMUNE GLOBULIN NOS
  14. METHOTREXATE (METHOTREXATE SODIUM) [Suspect]
     Active Substance: METHOTREXATE SODIUM
  15. CYCLOSPORINE [Suspect]
     Active Substance: CYCLOSPORINE
  16. VORICONAZOLE [Suspect]
     Active Substance: VORICONAZOLE
  17. GRANULOCYTE COLONY-STIMULATING FACTOR NOS [Concomitant]
     Active Substance: GRANULOCYTE COLONY-STIMULATING FACTOR NOS
     Indication: Granulocytopenia
     Dosage: DOSE DESCRIPTION : UNK ?G/KG, QD?DAILY DOSE :  MICROGRAM/KILOGRAM
  18. NOVOSEVEN [Concomitant]
     Active Substance: COAGULATION FACTOR VIIA RECOMBINANT HUMAN
     Indication: Haemorrhage

REACTIONS (12)
  - Pearson^s syndrome [Fatal]
  - Drug ineffective [Unknown]
  - Acute graft versus host disease [Recovering/Resolving]
  - Bronchopulmonary aspergillosis [Unknown]
  - Hyperglycaemia [Unknown]
  - Metabolic encephalopathy [Recovering/Resolving]
  - Acute myeloid leukaemia [Not Recovered/Not Resolved]
  - Renal tubular disorder [Recovering/Resolving]
  - Bronchopulmonary aspergillosis [Not Recovered/Not Resolved]
  - Graft versus host disease [Not Recovered/Not Resolved]
  - Chronic graft versus host disease [Recovering/Resolving]
  - Medication error [Unknown]
